FAERS Safety Report 8092389-X (Version None)
Quarter: 2012Q1

REPORT INFORMATION
  Report Type: 
  Country: None (occurrence: None)
  Receive Date: 20120125
  Receipt Date: 20120116
  Transmission Date: 20120608
  Serious: Yes (Hospitalization, Other)
  Sender: FDA-Public Use
  Company Number: AUR-APL-2012-00561

PATIENT
  Age: 58 Year
  Sex: Male
  Weight: 90 kg

DRUGS (10)
  1. SERTRALINE HYDROCHLORIDE [Suspect]
     Indication: PRODUCT USED FOR UNKNOWN INDICATION
  2. MESALAMINE [Concomitant]
  3. VALSARTAN [Concomitant]
  4. RABEPRAZOLE SODIUM [Concomitant]
  5. METOCLOPRAMIDE [Suspect]
     Indication: IMPAIRED GASTRIC EMPTYING
     Dosage: 20 MG (10 MG,2 IN 1 D),ORAL
     Route: 048
  6. RABEPRAZOLE SODIUM [Concomitant]
  7. NEBIVOLOL [Concomitant]
  8. VENLAFAXINE [Suspect]
     Indication: PRODUCT USED FOR UNKNOWN INDICATION
  9. MESALAMINE [Concomitant]
  10. CLINDAMYCIN [Concomitant]

REACTIONS (14)
  - METABOLIC ACIDOSIS [None]
  - ALCOHOL USE [None]
  - OVERDOSE [None]
  - CONVULSION [None]
  - ABDOMINAL DISCOMFORT [None]
  - CLOSTRIDIUM DIFFICILE COLITIS [None]
  - ABNORMAL BEHAVIOUR [None]
  - TELANGIECTASIA [None]
  - NEUROLEPTIC MALIGNANT SYNDROME [None]
  - OXYGEN SATURATION DECREASED [None]
  - ABDOMINAL TENDERNESS [None]
  - NUCLEAR MAGNETIC RESONANCE IMAGING BRAIN ABNORMAL [None]
  - SINUS TACHYCARDIA [None]
  - BUNDLE BRANCH BLOCK LEFT [None]
